FAERS Safety Report 7313256-2 (Version None)
Quarter: 2011Q1

REPORT INFORMATION
  Report Type: 
  Country: None (occurrence: None)
  Receive Date: 20110215
  Receipt Date: 20110215
  Transmission Date: 20110831
  Serious: No
  Sender: FDA-Public Use
  Company Number: None

PATIENT
  Sex: Female
  Weight: 53 kg

DRUGS (2)
  1. TAXOL [Suspect]
     Dosage: 360 MG
     Dates: end: 20110103
  2. CARBOPLATIN [Suspect]
     Dosage: 470 MG
     Dates: end: 20101220

REACTIONS (3)
  - SYNCOPE [None]
  - NAUSEA [None]
  - VOMITING [None]
